FAERS Safety Report 7639726-5 (Version None)
Quarter: 2011Q3

REPORT INFORMATION
  Report Type: 
  Country: None (occurrence: None)
  Receive Date: 20110727
  Receipt Date: 20110720
  Transmission Date: 20111222
  Serious: Yes (Other)
  Sender: FDA-Public Use
  Company Number: US-CEPHALON-2011003833

PATIENT
  Sex: Female
  Weight: 91 kg

DRUGS (11)
  1. FENOFIBRATE [Concomitant]
     Dates: end: 20110615
  2. BUMEX [Concomitant]
  3. BUMEX [Concomitant]
  4. ADVAIR DISKUS 100/50 [Concomitant]
  5. NEURONTIN [Concomitant]
  6. SIMVASTATIN [Concomitant]
  7. PROVENTIL [Concomitant]
  8. NUVIGIL [Suspect]
     Route: 048
     Dates: start: 20110718
  9. GLIMEPIRIDE [Concomitant]
  10. XOPENEX [Concomitant]
  11. NUVIGIL [Suspect]
     Indication: CATAPLEXY
     Route: 048
     Dates: start: 20110601

REACTIONS (2)
  - CATAPLEXY [None]
  - RASH VESICULAR [None]
